FAERS Safety Report 7867990-6 (Version None)
Quarter: 2011Q4

REPORT INFORMATION
  Report Type: 
  Country: None (occurrence: None)
  Receive Date: 20111024
  Receipt Date: 20111012
  Transmission Date: 20120403
  Serious: Yes (Hospitalization)
  Sender: FDA-Public Use
  Company Number: 2011SP044391

PATIENT
  Age: 24 Year
  Sex: Male
  Weight: 57 kg

DRUGS (20)
  1. HOFVAN [Concomitant]
  2. SELPAS [Concomitant]
  3. LEVOFLOXACIN [Suspect]
     Indication: RHINITIS
     Dosage: 500 MG;QD;PO
     Route: 048
     Dates: start: 20101027, end: 20101027
  4. LEVOFLOXACIN [Suspect]
     Indication: UPPER RESPIRATORY TRACT INFLAMMATION
     Dosage: 500 MG;QD;PO
     Route: 048
     Dates: start: 20101027, end: 20101027
  5. LEVOFLOXACIN [Suspect]
     Indication: BRONCHITIS
     Dosage: 500 MG;QD;PO
     Route: 048
     Dates: start: 20101027, end: 20101027
  6. METHISTA [Concomitant]
  7. METHY-F (DL-METHYLEPHEDRINE HYDROCHLORIDE) (METHYLEPHEDRINE HYDROCHLOR [Suspect]
     Indication: UPPER RESPIRATORY TRACT INFLAMMATION
     Dosage: 0.33 GM;TID;PO
     Route: 048
     Dates: start: 20101027, end: 20101027
  8. METHY-F (DL-METHYLEPHEDRINE HYDROCHLORIDE) (METHYLEPHEDRINE HYDROCHLOR [Suspect]
     Indication: BRONCHITIS
     Dosage: 0.33 GM;TID;PO
     Route: 048
     Dates: start: 20101027, end: 20101027
  9. METHY-F (DL-METHYLEPHEDRINE HYDROCHLORIDE) (METHYLEPHEDRINE HYDROCHLOR [Suspect]
     Indication: RHINITIS
     Dosage: 0.33 GM;TID;PO
     Route: 048
     Dates: start: 20101027, end: 20101027
  10. (TULOBUTEROL) [Concomitant]
  11. HOKUNALIN TAPE [Concomitant]
  12. LOXIPAIN (LOXOPROFEN SODIUM) [Suspect]
     Indication: UPPER RESPIRATORY TRACT INFLAMMATION
     Dosage: 60 MG;TID;PO
     Route: 048
     Dates: start: 20101027, end: 20101027
  13. LOXIPAIN (LOXOPROFEN SODIUM) [Suspect]
     Indication: RHINITIS
     Dosage: 60 MG;TID;PO
     Route: 048
     Dates: start: 20101027, end: 20101027
  14. LOXIPAIN (LOXOPROFEN SODIUM) [Suspect]
     Indication: BRONCHITIS
     Dosage: 60 MG;TID;PO
     Route: 048
     Dates: start: 20101027, end: 20101027
  15. CLARITIN [Suspect]
     Indication: RHINITIS
     Dosage: 10 MG;QD;PO
     Route: 048
     Dates: start: 20101027, end: 20101027
  16. CLARITIN [Suspect]
     Indication: BRONCHITIS
     Dosage: 10 MG;QD;PO
     Route: 048
     Dates: start: 20101027, end: 20101027
  17. CLARITIN [Suspect]
     Indication: UPPER RESPIRATORY TRACT INFLAMMATION
     Dosage: 10 MG;QD;PO
     Route: 048
     Dates: start: 20101027, end: 20101027
  18. HUSTAGIN (PLANTAGO MAJOR) [Suspect]
     Indication: RHINITIS
     Dosage: 0.66 GM;TID;PO
     Route: 048
     Dates: start: 20101027, end: 20101027
  19. HUSTAGIN (PLANTAGO MAJOR) [Suspect]
     Indication: UPPER RESPIRATORY TRACT INFLAMMATION
     Dosage: 0.66 GM;TID;PO
     Route: 048
     Dates: start: 20101027, end: 20101027
  20. HUSTAGIN (PLANTAGO MAJOR) [Suspect]
     Indication: BRONCHITIS
     Dosage: 0.66 GM;TID;PO
     Route: 048
     Dates: start: 20101027, end: 20101027

REACTIONS (1)
  - ANAPHYLACTOID REACTION [None]
